FAERS Safety Report 17152619 (Version 1)
Quarter: 2019Q4

REPORT INFORMATION
  Report Type: Spontaneous
  Country: US (occurrence: US)
  Receive Date: 20191213
  Receipt Date: 20191213
  Transmission Date: 20200122
  Serious: No
  Sender: FDA-Public Use
  Company Number: US-NOVOPROD-636946

PATIENT
  Age: 68 Year
  Sex: Female

DRUGS (3)
  1. HUMALOG [Concomitant]
     Active Substance: INSULIN LISPRO
     Indication: TYPE 2 DIABETES MELLITUS
     Dosage: 20 U, QD - MORNING
     Route: 065
     Dates: start: 20180901
  2. PROLIA [Concomitant]
     Active Substance: DENOSUMAB
     Dosage: PAST 2-3 YEARS EVERY 6 MONTHS
     Route: 065
  3. LEVEMIR [Suspect]
     Active Substance: INSULIN DETEMIR
     Indication: TYPE 2 DIABETES MELLITUS
     Dosage: 40 U, QD - NIGHT
     Route: 058
     Dates: start: 201809

REACTIONS (6)
  - Formication [Not Recovered/Not Resolved]
  - Heart rate increased [Not Recovered/Not Resolved]
  - Rash [Not Recovered/Not Resolved]
  - Vision blurred [Not Recovered/Not Resolved]
  - Feeling abnormal [Not Recovered/Not Resolved]
  - Vein disorder [Not Recovered/Not Resolved]

NARRATIVE: CASE EVENT DATE: 201809
